FAERS Safety Report 10644145 (Version 1)
Quarter: 2014Q4

REPORT INFORMATION
  Report Type: Spontaneous
  Country: US (occurrence: US)
  Receive Date: 20141210
  Receipt Date: 20141210
  Transmission Date: 20150529
  Serious: No
  Sender: FDA-Public Use
  Company Number: US-NOVEN-13US008509

PATIENT
  Sex: Female

DRUGS (1)
  1. FENTANYL. [Suspect]
     Active Substance: FENTANYL
     Indication: PAIN
     Dosage: 100 UG/HR Q 72HRS
     Route: 062
     Dates: start: 201311, end: 20131220

REACTIONS (1)
  - Application site pruritus [None]

NARRATIVE: CASE EVENT DATE: 201311
